FAERS Safety Report 7180203-6 (Version None)
Quarter: 2010Q4

REPORT INFORMATION
  Report Type: 
  Country: None (occurrence: None)
  Receive Date: 20101209
  Receipt Date: 20101124
  Transmission Date: 20110411
  Serious: Yes (Hospitalization)
  Sender: FDA-Public Use
  Company Number: LIT-10-0061-W

PATIENT
  Age: 74 Year
  Sex: Female

DRUGS (8)
  1. RISPERIDONE [Suspect]
     Indication: AGGRESSION
     Dosage: 0.125MG DAILY, ORAL
     Route: 048
  2. MEMANTINE [Concomitant]
  3. DONEPEZIL HCL [Concomitant]
  4. CITALOPRAM HYDROBROMIDE [Concomitant]
  5. LEVOTHYROXINE [Concomitant]
  6. ATENOLOL [Concomitant]
  7. SMX/TMP [Concomitant]
  8. ASPIRIN [Concomitant]

REACTIONS (5)
  - AGGRESSION [None]
  - CONDITION AGGRAVATED [None]
  - MYOCLONUS [None]
  - SEROTONIN SYNDROME [None]
  - TREMOR [None]
